FAERS Safety Report 10359324 (Version 1)
Quarter: 2014Q3

REPORT INFORMATION
  Report Type: Spontaneous
  Country: US (occurrence: None)
  Receive Date: 20140801
  Receipt Date: 20140801
  Transmission Date: 20150326
  Serious: Yes (Hospitalization, Disabling)
  Sender: FDA-Public Use
  Company Number: None

PATIENT
  Age: 64 Year
  Sex: Male
  Weight: 99.34 kg

DRUGS (14)
  1. LOVASTATIN. [Concomitant]
     Active Substance: LOVASTATIN
  2. AMBIEN [Suspect]
     Active Substance: ZOLPIDEM TARTRATE
     Indication: POST-TRAUMATIC STRESS DISORDER
     Dosage: 1 @ NIGHT, BED TIME, MOUTH
     Dates: start: 201009
  3. RANITIDINE [Concomitant]
     Active Substance: RANITIDINE\RANITIDINE HYDROCHLORIDE
  4. LORAZEPAM. [Concomitant]
     Active Substance: LORAZEPAM
  5. SUMATRIPTAN [Concomitant]
     Active Substance: SUMATRIPTAN
  6. OMEGA AND FISH OIL [Concomitant]
  7. AMBIEN [Suspect]
     Active Substance: ZOLPIDEM TARTRATE
     Indication: INSOMNIA
     Dosage: 1 @ NIGHT, BED TIME, MOUTH
     Dates: start: 201009
  8. MULTI-VITAMIN [Concomitant]
     Active Substance: .ALPHA.-TOCOPHEROL ACETATE, DL-\ASCORBIC ACID\CYANOCOBALAMIN\FLUORIDE ION\FOLIC ACID\NIACIN\PYRIDOXINE\RIBOFLAVIN\THIAMINE\VITAMIN A\VITAMIN D
  9. EFFEXOR [Concomitant]
     Active Substance: VENLAFAXINE HYDROCHLORIDE
  10. LANSOPRAZOLE. [Concomitant]
     Active Substance: LANSOPRAZOLE
  11. VITAMIN C [Concomitant]
     Active Substance: ASCORBIC ACID
  12. VITAMIN D [Concomitant]
     Active Substance: CHOLECALCIFEROL
  13. DIAZEPAM. [Concomitant]
     Active Substance: DIAZEPAM
  14. CLONAZEPAM. [Concomitant]
     Active Substance: CLONAZEPAM

REACTIONS (3)
  - Nausea [None]
  - Migraine [None]
  - Malaise [None]

NARRATIVE: CASE EVENT DATE: 201009
